FAERS Safety Report 4941276-1 (Version None)
Quarter: 2006Q1

REPORT INFORMATION
  Report Type: 
  Country: None (occurrence: None)
  Receive Date: 20060313
  Receipt Date: 20050930
  Transmission Date: 20060701
  Serious: Yes (Other)
  Sender: FDA-Public Use
  Company Number: US-MERCK-0510USA01400

PATIENT
  Age: 83 Year
  Sex: Female

DRUGS (7)
  1. VIOXX [Suspect]
     Route: 048
     Dates: start: 19990101
  2. ARICEPT [Concomitant]
     Route: 048
  3. METHOTREXATE [Concomitant]
     Route: 048
  4. FOLIC ACID [Concomitant]
     Route: 048
  5. TRAZODONE HYDROCHLORIDE [Concomitant]
     Route: 048
  6. PRILOSEC [Concomitant]
     Route: 048
  7. POTASSIUM CHLORIDE [Concomitant]
     Route: 048

REACTIONS (4)
  - FAECAL INCONTINENCE [None]
  - MYOCARDIAL ISCHAEMIA [None]
  - SYNCOPE [None]
  - URINARY INCONTINENCE [None]
